FAERS Safety Report 25240256 (Version 1)
Quarter: 2025Q2

REPORT INFORMATION
  Report Type: Spontaneous
  Country: US (occurrence: US)
  Receive Date: 20250425
  Receipt Date: 20250425
  Transmission Date: 20250717
  Serious: Yes (Other)
  Sender: BAYER HEALTHCARE LLC
  Company Number: US-BAYER-2025A054269

PATIENT
  Sex: Female

DRUGS (1)
  1. AFRIN NO DRIP ORIGINAL PUMP MIST [Suspect]
     Active Substance: OXYMETAZOLINE HYDROCHLORIDE
     Indication: Nasal congestion
     Dates: start: 2012

REACTIONS (3)
  - Drug dependence [Unknown]
  - Wrong technique in product usage process [Unknown]
  - Maternal exposure during pregnancy [Unknown]
